FAERS Safety Report 25553528 (Version 2)
Quarter: 2025Q3

REPORT INFORMATION
  Report Type: Spontaneous
  Country: JP (occurrence: JP)
  Receive Date: 20250715
  Receipt Date: 20250801
  Transmission Date: 20251020
  Serious: Yes (Other)
  Sender: ASTELLAS
  Company Number: JP-ASTELLAS-2022JP014296

PATIENT
  Age: 73 Year
  Sex: Male
  Weight: 64 kg

DRUGS (14)
  1. PADCEV [Suspect]
     Active Substance: ENFORTUMAB VEDOTIN-EJFV
     Indication: Ureteric cancer
     Route: 042
     Dates: start: 20220811, end: 20220825
  2. PADCEV [Suspect]
     Active Substance: ENFORTUMAB VEDOTIN-EJFV
     Route: 042
     Dates: start: 20221013
  3. Thyradin S Tablets 100ug [Concomitant]
     Indication: Product used for unknown indication
     Route: 048
     Dates: start: 20181120
  4. LOSARTAN POTASSIUM [Concomitant]
     Active Substance: LOSARTAN POTASSIUM
     Indication: Product used for unknown indication
     Route: 048
     Dates: start: 20181120
  5. AMLODIPINE BESYLATE [Concomitant]
     Active Substance: AMLODIPINE BESYLATE
     Indication: Product used for unknown indication
     Route: 048
     Dates: start: 20181120
  6. Constan Tablets 0.4mg [Concomitant]
     Indication: Product used for unknown indication
     Route: 048
     Dates: start: 20181120
  7. Depas Tablets 0.5mg [Concomitant]
     Indication: Product used for unknown indication
     Route: 048
     Dates: start: 20181120
  8. LATACHIMO Combination Ophthalmic Solution [Concomitant]
     Indication: Product used for unknown indication
     Route: 047
     Dates: start: 20181120
  9. Brinzolamide Ophthalmic Suspension 1? [Concomitant]
     Indication: Product used for unknown indication
     Route: 047
     Dates: start: 20181120
  10. Cyanocobalamin Ophthalmic Solution 0.02? [Concomitant]
     Indication: Product used for unknown indication
     Route: 047
     Dates: start: 20181120
  11. Hyaluronate Na Ophthalmic Solution 0.1? [Concomitant]
     Indication: Product used for unknown indication
     Route: 047
     Dates: start: 20181120
  12. Heparinoid Oil-Based Cream 0.3? [Concomitant]
     Indication: Product used for unknown indication
     Route: 062
     Dates: start: 20220810
  13. Magmitt Tablets 330mg [Concomitant]
     Indication: Product used for unknown indication
     Route: 048
     Dates: start: 20220811
  14. ORGADRONE [Concomitant]
     Active Substance: DEXAMETHASONE SODIUM PHOSPHATE
     Indication: Product used for unknown indication
     Route: 042
     Dates: start: 20220811

REACTIONS (1)
  - Dermatitis bullous [Recovered/Resolved]

NARRATIVE: CASE EVENT DATE: 20220822
